FAERS Safety Report 8189198-X (Version None)
Quarter: 2012Q1

REPORT INFORMATION
  Report Type: 
  Country: None (occurrence: None)
  Receive Date: 20120306
  Receipt Date: 20120306
  Transmission Date: 20120608
  Serious: Yes (Death)
  Sender: FDA-Public Use
  Company Number: None

PATIENT
  Age: 71 Year
  Sex: Male

DRUGS (7)
  1. FLUOXETINE HCL [Concomitant]
  2. METOPROLOL SUCCINATE [Concomitant]
  3. REVLIMID [Suspect]
     Indication: MULTIPLE MYELOMA
     Dosage: 10 MG QD X 21/28DAYS BY MOUTH
     Dates: start: 20110920, end: 20111004
  4. DEXAMETHASONE [Concomitant]
  5. AMIODARONE HCL [Concomitant]
  6. DOCUSATE SODIUM [Concomitant]
  7. NOVOLIN 70/30 [Concomitant]

REACTIONS (10)
  - HEPATIC ENCEPHALOPATHY [None]
  - HAEMATURIA [None]
  - MULTIPLE MYELOMA [None]
  - GENERAL PHYSICAL HEALTH DETERIORATION [None]
  - PANCYTOPENIA [None]
  - SEPSIS [None]
  - PYREXIA [None]
  - RESPIRATORY DISTRESS [None]
  - NEOPLASM PROGRESSION [None]
  - HYPOTENSION [None]
